FAERS Safety Report 25110662 (Version 2)
Quarter: 2025Q2

REPORT INFORMATION
  Report Type: Report from Study
  Country: US (occurrence: US)
  Receive Date: 20250324
  Receipt Date: 20250423
  Transmission Date: 20250717
  Serious: No
  Sender: SUNOVION
  Company Number: US-SUMITOMO PHARMA SWITZERLAND GMBH-2025SPA002333

PATIENT

DRUGS (2)
  1. ORGOVYX [Suspect]
     Active Substance: RELUGOLIX
     Indication: Prostate cancer
     Dosage: 120 MG, QD
     Route: 048
     Dates: start: 20250304
  2. FIRMAGON [Suspect]
     Active Substance: DEGARELIX ACETATE
     Route: 065

REACTIONS (3)
  - Fatigue [Unknown]
  - Loss of libido [Unknown]
  - Incorrect dose administered [Unknown]
